FAERS Safety Report 13581772 (Version 1)
Quarter: 2017Q2

REPORT INFORMATION
  Report Type: Spontaneous
  Country: US (occurrence: US)
  Receive Date: 20170525
  Receipt Date: 20170525
  Transmission Date: 20170830
  Serious: No
  Sender: FDA-Public Use
  Company Number: US-TARO-2016TAR00842

PATIENT
  Sex: Male

DRUGS (2)
  1. TOPICORT [Suspect]
     Active Substance: DESOXIMETASONE
     Indication: ECZEMA
     Dosage: UNK, 2X/DAY
     Dates: start: 20160926
  2. ALLEGRA 12 HOUR [Concomitant]
     Dosage: UNK, AS NEEDED

REACTIONS (4)
  - Application site vesicles [Not Recovered/Not Resolved]
  - Application site papules [Not Recovered/Not Resolved]
  - Application site erythema [Not Recovered/Not Resolved]
  - Off label use [Recovered/Resolved]

NARRATIVE: CASE EVENT DATE: 20160926
